FAERS Safety Report 9162491 (Version 2)
Quarter: 2013Q2

REPORT INFORMATION
  Report Type: Spontaneous
  Country: IT (occurrence: IT)
  Receive Date: 20130314
  Receipt Date: 20130422
  Transmission Date: 20140414
  Serious: Yes (Hospitalization)
  Sender: FDA-Public Use
  Company Number: IT-SANOFI-AVENTIS-2013SA024301

PATIENT
  Age: 92 Year
  Sex: Female
  Weight: 61 kg

DRUGS (9)
  1. LASIX [Suspect]
     Indication: HYPERTENSION
     Route: 048
     Dates: start: 20040101, end: 20130225
  2. NEO-LOTAN [Suspect]
     Indication: HYPERTENSION
     Route: 048
     Dates: start: 20040101, end: 20130225
  3. LACIPIL [Suspect]
     Indication: HYPERTENSION
     Route: 048
     Dates: start: 20040101, end: 20130225
  4. CARDURA [Suspect]
     Indication: HYPERTENSION
     Route: 048
     Dates: start: 20040101, end: 20130225
  5. LANSOX [Concomitant]
     Dates: start: 20120101, end: 20130225
  6. TEGRETOL [Concomitant]
     Indication: TRIGEMINAL NEURALGIA
     Route: 048
     Dates: start: 20120101, end: 20130225
  7. EUTIROX [Concomitant]
     Route: 048
     Dates: start: 20120101, end: 20130225
  8. COUMADIN [Concomitant]
     Route: 048
  9. CLEXANE [Concomitant]
     Dosage: 1 VIAL/ DAY
     Dates: start: 20130222, end: 20130225

REACTIONS (2)
  - Syncope [Recovering/Resolving]
  - Hypotension [Recovering/Resolving]
